FAERS Safety Report 4978921-0 (Version None)
Quarter: 2006Q2

REPORT INFORMATION
  Report Type: 
  Country: None (occurrence: None)
  Receive Date: 20060421
  Receipt Date: 20060410
  Transmission Date: 20061013
  Serious: Yes (Hospitalization)
  Sender: FDA-Public Use
  Company Number: PHRM2006FR01327

PATIENT
  Age: 82 Year
  Sex: Male

DRUGS (6)
  1. TEGRETOL [Suspect]
     Indication: TREMOR
     Dosage: 200 MG, QD
     Route: 048
     Dates: start: 20051129, end: 20051203
  2. STABLON [Concomitant]
     Dosage: 12.5 MG, BID
     Route: 048
     Dates: end: 20051128
  3. STABLON [Concomitant]
     Dosage: 12.5 MG, TID
     Route: 048
     Dates: start: 20051129
  4. MOPRAL [Concomitant]
     Dosage: 20 MG, QD
     Route: 048
  5. STILNOX [Concomitant]
     Dosage: 5 MG, QD
     Route: 048
  6. DOLIPRANE [Concomitant]

REACTIONS (5)
  - CONFUSIONAL STATE [None]
  - DIFFICULTY IN WALKING [None]
  - DYSSTASIA [None]
  - HYPONATRAEMIA [None]
  - INAPPROPRIATE ANTIDIURETIC HORMONE SECRETION [None]
